FAERS Safety Report 8409992-7 (Version None)
Quarter: 2012Q2

REPORT INFORMATION
  Report Type: 
  Country: None (occurrence: None)
  Receive Date: 20120529
  Receipt Date: 20120517
  Transmission Date: 20120825
  Serious: Yes (Other)
  Sender: FDA-Public Use
  Company Number: 2012123515

PATIENT
  Age: 49 Year
  Sex: Female

DRUGS (1)
  1. FRAGMIN [Suspect]
     Dates: start: 20120401

REACTIONS (4)
  - BODY TEMPERATURE INCREASED [None]
  - APHAGIA [None]
  - VOMITING [None]
  - HEPATIC ENZYME INCREASED [None]
